FAERS Safety Report 4828082-3 (Version None)
Quarter: 2005Q4

REPORT INFORMATION
  Report Type: 
  Country: None (occurrence: None)
  Receive Date: 20051114
  Receipt Date: 20051114
  Transmission Date: 20060501
  Serious: Yes (Other)
  Sender: FDA-Public Use
  Company Number: None

PATIENT
  Age: 62 Year
  Sex: Female
  Weight: 49.8957 kg

DRUGS (1)
  1. RESTASIS [Suspect]
     Indication: SJOGREN'S SYNDROME
     Dosage: ONE DROP IN EACH EYE   TWICE DAILY  INTRAOCULA
     Route: 031
     Dates: start: 20051014, end: 20051111

REACTIONS (4)
  - HEADACHE [None]
  - INSOMNIA [None]
  - PALPITATIONS [None]
  - RESTLESSNESS [None]
